FAERS Safety Report 6294977-X (Version None)
Quarter: 2009Q3

REPORT INFORMATION
  Report Type: 
  Country: None (occurrence: None)
  Receive Date: 20090731
  Receipt Date: 20090731
  Transmission Date: 20100115
  Serious: No
  Sender: FDA-Public Use
  Company Number: None

PATIENT
  Age: 55 Year
  Sex: Female
  Weight: 112.0385 kg

DRUGS (4)
  1. IODOSORB [Suspect]
     Indication: ALLERGY TO METALS
     Dosage: COVER WOUND ONCE A DAY
     Dates: start: 20090711, end: 20090727
  2. IODOSORB [Suspect]
     Indication: FOOT OPERATION
     Dosage: COVER WOUND ONCE A DAY
     Dates: start: 20090711, end: 20090727
  3. IODOSORB [Suspect]
     Indication: IMPAIRED HEALING
     Dosage: COVER WOUND ONCE A DAY
     Dates: start: 20090711, end: 20090727
  4. IODOSORB [Suspect]
     Indication: OPEN WOUND
     Dosage: COVER WOUND ONCE A DAY
     Dates: start: 20090711, end: 20090727

REACTIONS (4)
  - BLISTER [None]
  - BLOOD BLISTER [None]
  - CAUSTIC INJURY [None]
  - WOUND COMPLICATION [None]
